FAERS Safety Report 8155935-3 (Version None)
Quarter: 2012Q1

REPORT INFORMATION
  Report Type: 
  Country: None (occurrence: None)
  Receive Date: 20120222
  Receipt Date: 20120213
  Transmission Date: 20120608
  Serious: Yes (Hospitalization)
  Sender: FDA-Public Use
  Company Number: ES-SANOFI-AVENTIS-2011SA071996

PATIENT
  Age: 70 Year
  Sex: Male
  Weight: 93.5 kg

DRUGS (24)
  1. OMEPRAZOLE [Concomitant]
     Dates: start: 20070101
  2. CALCIUM CARBONATE [Concomitant]
  3. LYRICA [Concomitant]
     Indication: PAIN
     Dates: start: 20070101
  4. NOLOTIL [Concomitant]
  5. NITROGLYCERIN [Concomitant]
     Dates: start: 20060101
  6. CALCIUM [Concomitant]
     Dates: start: 20111013, end: 20111014
  7. OMACOR [Concomitant]
     Dates: start: 20060101
  8. TIMOFTOL [Concomitant]
     Indication: OCULAR HYPERTENSION
  9. DOCETAXEL [Suspect]
     Route: 042
     Dates: start: 20111024
  10. DOCETAXEL [Suspect]
     Route: 042
     Dates: start: 20111005
  11. TRAMADOL HCL [Concomitant]
  12. CALCIUM [Concomitant]
     Dosage: 500 UNIT NOT REPORTED
     Dates: start: 20111014, end: 20111017
  13. TORSEMIDE [Concomitant]
     Indication: HYPERTENSION
     Dates: start: 20060101, end: 20111022
  14. ASPIRIN [Concomitant]
     Dates: start: 20060101
  15. ACOVIL [Concomitant]
     Dates: start: 20060101
  16. BLINDED THERAPY [Suspect]
     Route: 048
     Dates: start: 20111006
  17. ATORVASTATIN [Concomitant]
     Dates: start: 20060101
  18. PRIMPERAN TAB [Concomitant]
     Indication: NAUSEA
     Dates: start: 20111006, end: 20111012
  19. BISOPROLOL FUMARATE [Concomitant]
     Dates: start: 20060101
  20. HEPARIN [Concomitant]
  21. LORMETAZEPAM [Concomitant]
     Indication: INSOMNIA
  22. ACETAMINOPHEN [Concomitant]
  23. FUROSEMIDA [Concomitant]
     Indication: HYPERTENSION
  24. CALCIUM [Concomitant]
     Dates: start: 20111014, end: 20111014

REACTIONS (4)
  - HYPOPHOSPHATAEMIA [None]
  - HYPOKALAEMIA [None]
  - DIARRHOEA [None]
  - NEUTROPENIA [None]
